FAERS Safety Report 6168226-7 (Version None)
Quarter: 2009Q2

REPORT INFORMATION
  Report Type: 
  Country: None (occurrence: None)
  Receive Date: 20090427
  Receipt Date: 20090422
  Transmission Date: 20091009
  Serious: Yes (Death, Hospitalization, Other)
  Sender: FDA-Public Use
  Company Number: PHHY2009BR15270

PATIENT
  Age: 91 Year
  Sex: Female

DRUGS (11)
  1. DIOVAN HCT [Suspect]
     Indication: HYPERTENSION
     Dosage: 1 DF IN THE MORNING
     Route: 048
  2. PRESSAT [Suspect]
     Dosage: ONE TABLET AT NIGHT
  3. PLAVIX [Suspect]
     Dosage: UNK
     Dates: end: 20080801
  4. ANCORON [Concomitant]
     Indication: CARDIAC FAILURE
     Dosage: UNK
     Dates: start: 20070101
  5. FRONTAL [Concomitant]
     Indication: NERVOUS SYSTEM DISORDER
     Dosage: UNK
  6. DEPAKOTE [Concomitant]
     Dosage: UNK
  7. RIVOTRIL [Concomitant]
     Dosage: UNK
  8. PANTOPRAZOLE SODIUM [Concomitant]
     Dosage: UNK
  9. VENALOT (COUMARIN) [Concomitant]
     Indication: VASCULAR INSUFFICIENCY
     Dosage: UNK
  10. DAFLON (DIOSMIN) [Concomitant]
     Indication: VASCULAR INSUFFICIENCY
     Dosage: UNK
  11. EBIXA [Concomitant]
     Indication: DEMENTIA ALZHEIMER'S TYPE
     Dosage: UNK

REACTIONS (12)
  - ANAEMIA [None]
  - BLOOD PRESSURE FLUCTUATION [None]
  - CARDIAC FAILURE [None]
  - CHEST PAIN [None]
  - CORONARY ARTERIAL STENT INSERTION [None]
  - DEMENTIA ALZHEIMER'S TYPE [None]
  - INFARCTION [None]
  - NOSOCOMIAL INFECTION [None]
  - PNEUMONIA [None]
  - PULMONARY OEDEMA [None]
  - SEPTIC SHOCK [None]
  - SWELLING [None]
